FAERS Safety Report 5466611-X (Version None)
Quarter: 2007Q3

REPORT INFORMATION
  Report Type: 
  Country: None (occurrence: None)
  Receive Date: 20070925
  Receipt Date: 20070918
  Transmission Date: 20080115
  Serious: Yes (Other)
  Sender: FDA-Public Use
  Company Number: PHNR2007AU01096

PATIENT
  Sex: Female

DRUGS (1)
  1. GLEEVEC [Suspect]
     Indication: CHRONIC MYELOID LEUKAEMIA
     Dosage: 400MG
     Route: 048
     Dates: start: 20060701

REACTIONS (3)
  - ABDOMINAL PAIN [None]
  - COLONOSCOPY NORMAL [None]
  - IRRITABLE BOWEL SYNDROME [None]
